FAERS Safety Report 8458818 (Version 3)
Quarter: 2012Q4

REPORT INFORMATION
  Report Type: 
  Country: US (occurrence: US)
  Receive Date: 20120314
  Receipt Date: 20121128
  Transmission Date: 20130627
  Serious: Yes (Hospitalization)
  Sender: FDA-Public Use
  Company Number: US-ACTELION-A-NJ2011-51863

PATIENT
  Age: 72 Year
  Sex: Female

DRUGS (5)
  1. TRACLEER [Suspect]
     Indication: PULMONARY ARTERIAL HYPERTENSION
     Dosage: UNK
     Route: 048
  2. REVATIO [Concomitant]
  3. COUMADIN [Concomitant]
  4. ADCIRCA [Concomitant]
  5. OXYGEN [Concomitant]

REACTIONS (10)
  - Atrial fibrillation [Unknown]
  - Heart rate increased [Unknown]
  - Bronchitis [Unknown]
  - Dyspnoea [Unknown]
  - Fluid retention [Unknown]
  - Diabetes mellitus [Unknown]
  - Blood pressure increased [Unknown]
  - Contusion [Unknown]
  - Syncope [Unknown]
  - Anaemia [Unknown]
